FAERS Safety Report 9261414 (Version 1)
Quarter: 2013Q2

REPORT INFORMATION
  Report Type: Other
  Country: IT (occurrence: IT)
  Receive Date: 20130429
  Receipt Date: 20130429
  Transmission Date: 20140414
  Serious: Yes (Hospitalization)
  Sender: FDA-Public Use
  Company Number: IT-WATSON-2013-07175

PATIENT
  Age: 35 Year
  Sex: Female

DRUGS (2)
  1. CITALOPRAM HYDROBROMIDE (UNKNOWN) [Suspect]
     Indication: PRODUCT USED FOR UNKNOWN INDICATION
     Dosage: DAILY DOSE UNKNOWN - OVERDOSE WITH 6 DOSAGE FORM TOTAL
     Route: 048
     Dates: start: 20130301, end: 20130301
  2. PALIPERIDONE [Suspect]
     Indication: PRODUCT USED FOR UNKNOWN INDICATION
     Dosage: DAILY DOSE UNKNOWN - OVERDOSE WITH 3 DOSAGE FORM TOTAL
     Route: 048
     Dates: start: 20130301, end: 20130301

REACTIONS (3)
  - Drug abuse [Recovering/Resolving]
  - Overdose [Recovering/Resolving]
  - Electrocardiogram QT prolonged [Recovering/Resolving]
